FAERS Safety Report 4606551-9 (Version None)
Quarter: 2005Q2

REPORT INFORMATION
  Report Type: 
  Country: None (occurrence: None)
  Receive Date: 20050223
  Receipt Date: 20040823
  Transmission Date: 20051028
  Serious: Yes (Life-Threatening, Disabling)
  Sender: FDA-Public Use
  Company Number: WAES 0408USA01807

PATIENT
  Age: 59 Year
  Sex: Male
  Weight: 129.2752 kg

DRUGS (14)
  1. ZOCOR [Suspect]
     Indication: BLOOD CHOLESTEROL INCREASED
     Dosage: 40 MG/DAILY/PO
     Route: 048
     Dates: start: 20000101
  2. ZOCOR [Suspect]
     Indication: HYPERLIPIDAEMIA
     Dosage: 40 MG/DAILY/PO
     Route: 048
     Dates: start: 20000101
  3. COUMADIN [Concomitant]
  4. COZAAR [Concomitant]
  5. FLOVENT [Concomitant]
  6. HYTRIN [Concomitant]
  7. IMDUR [Concomitant]
  8. LASIX [Concomitant]
  9. TRENTAL [Concomitant]
  10. WELLBUTRIN [Concomitant]
  11. NITROGLYCERIN [Concomitant]
  12. OXYGEN [Concomitant]
  13. SOTALOL HCL [Concomitant]
  14. SPIRONOLACTONE [Concomitant]

REACTIONS (4)
  - ASTHENIA [None]
  - EXPOSURE TO TOXIC AGENT [None]
  - RESPIRATORY DISORDER [None]
  - RHABDOMYOLYSIS [None]
